FAERS Safety Report 9619747 (Version 1)
Quarter: 2013Q4

REPORT INFORMATION
  Report Type: Spontaneous
  Country: US (occurrence: US)
  Receive Date: 20131014
  Receipt Date: 20131014
  Transmission Date: 20140711
  Serious: Yes (Death)
  Sender: FDA-Public Use
  Company Number: US-GLAXOSMITHKLINE-A1045289A

PATIENT
  Age: 86 Year
  Sex: Female

DRUGS (9)
  1. PROMACTA [Suspect]
     Indication: IMMUNE THROMBOCYTOPENIC PURPURA
     Dosage: 50MG PER DAY
     Route: 048
     Dates: start: 20130624
  2. ALLOPURINOL [Concomitant]
  3. PREDNISONE [Concomitant]
  4. HYDROCODONE/APAP [Concomitant]
  5. ALTACE [Concomitant]
  6. TOPROL XL [Concomitant]
  7. NOVOLOG [Concomitant]
  8. FUROSEMIDE [Concomitant]
  9. SYNTHROID [Concomitant]

REACTIONS (1)
  - Death [Fatal]
